FAERS Safety Report 19891444 (Version 2)
Quarter: 2021Q4

REPORT INFORMATION
  Report Type: Spontaneous
  Country: US (occurrence: US)
  Receive Date: 20210928
  Receipt Date: 20211222
  Transmission Date: 20220303
  Serious: No
  Sender: FDA-Public Use
  Company Number: US-GW PHARMA-202109USGW04617

PATIENT

DRUGS (3)
  1. EPIDIOLEX [Suspect]
     Active Substance: CANNABIDIOL
     Indication: Lennox-Gastaut syndrome
     Dosage: 1600 MILLIGRAM, BID
     Route: 048
     Dates: start: 20210114
  2. EPIDIOLEX [Suspect]
     Active Substance: CANNABIDIOL
     Dosage: 1600 MILLIGRAM, BID
     Route: 048
     Dates: start: 20210114
  3. EPIDIOLEX [Suspect]
     Active Substance: CANNABIDIOL
     Dosage: BEING WEANED OFF
     Route: 048
     Dates: start: 2021

REACTIONS (5)
  - Seizure [Unknown]
  - Diarrhoea [Not Recovered/Not Resolved]
  - Weight decreased [Not Recovered/Not Resolved]
  - Drug ineffective [Unknown]
  - Overdose [Unknown]

NARRATIVE: CASE EVENT DATE: 20210101
